FAERS Safety Report 8434375-3 (Version None)
Quarter: 2012Q2

REPORT INFORMATION
  Report Type: 
  Country: None (occurrence: None)
  Receive Date: 20120613
  Receipt Date: 20120530
  Transmission Date: 20120825
  Serious: Yes (Other)
  Sender: FDA-Public Use
  Company Number: CHPA2012US009680

PATIENT
  Age: 71 Year
  Sex: Male

DRUGS (4)
  1. POLYETHYLENE GLYCOL [Concomitant]
     Dosage: UNK, UNK
  2. LOSARTAN POTASSIUM [Concomitant]
     Dosage: 12.5 MG, IN THE MORNING
     Dates: start: 20120223
  3. BENEFIBER W/ WHEAT DEXTRIN [Suspect]
     Indication: CONSTIPATION
     Dosage: 2 TSP, BID
     Route: 048
     Dates: start: 20100101
  4. DRUG THERAPY NOS [Concomitant]
     Indication: BLOOD PRESSURE
     Dosage: UNK, UNK

REACTIONS (9)
  - DECREASED APPETITE [None]
  - ABDOMINAL DISTENSION [None]
  - METAPLASIA [None]
  - COLONIC POLYP [None]
  - OFF LABEL USE [None]
  - NAUSEA [None]
  - THERAPEUTIC RESPONSE DECREASED [None]
  - GASTRITIS [None]
  - ADENOMA BENIGN [None]
